FAERS Safety Report 6094792-6 (Version None)
Quarter: 2009Q1

REPORT INFORMATION
  Report Type: 
  Country: None (occurrence: None)
  Receive Date: 20090225
  Receipt Date: 20090210
  Transmission Date: 20090719
  Serious: Yes (Hospitalization, Other)
  Sender: FDA-Public Use
  Company Number: 230098K09USA

PATIENT
  Age: 44 Year
  Sex: Female
  Weight: 170 kg

DRUGS (16)
  1. REBIF [Suspect]
     Indication: MULTIPLE SCLEROSIS
     Dosage: 44 MCG, 3 IN 1 WEEKS, SUBCUTANEOUS
     Route: 058
     Dates: start: 20081013, end: 20090108
  2. REBIF [Suspect]
     Indication: MULTIPLE SCLEROSIS
     Dosage: 44 MCG, 3 IN 1 WEEKS, SUBCUTANEOUS
     Route: 058
     Dates: start: 20090115
  3. LISINOPRIL [Concomitant]
  4. OMEPRAZOLE [Concomitant]
  5. NOVOLOG PREFILLED (INSULIN ASPART) [Concomitant]
  6. LANTUS [Concomitant]
  7. MULTIVITAMIN (MULTIVITAMIN) [Concomitant]
  8. ASCORBIC ACID [Concomitant]
  9. VITAMIN D [Concomitant]
  10. CALCIUM (CALCIUM-SANDOZ) [Concomitant]
  11. MAGNESIUM (MAGNESIUM HYDROXIDE) [Concomitant]
  12. ZINC (ZINC) [Concomitant]
  13. FLAX OIL (LINUM USITATISSIMUM SEED OIL) [Concomitant]
  14. GARLIC (ALLIUM SATIVUM) [Concomitant]
  15. CINNAMON (CINNAMON VERUM) [Concomitant]
  16. GINGER (ZINGIBER OFFICINALE RHIZOME) [Concomitant]

REACTIONS (4)
  - ANAEMIA [None]
  - CARPAL TUNNEL SYNDROME [None]
  - FEELING OF BODY TEMPERATURE CHANGE [None]
  - UTERINE LEIOMYOMA [None]
